FAERS Safety Report 23653892 (Version 1)
Quarter: 2024Q1

REPORT INFORMATION
  Report Type: Spontaneous
  Country: US (occurrence: US)
  Receive Date: 20240320
  Receipt Date: 20240320
  Transmission Date: 20240410
  Serious: Yes (Other)
  Sender: FDA-Public Use
  Company Number: US-BRISTOL-MYERS SQUIBB COMPANY-2024-043850

PATIENT
  Age: 53 Year
  Sex: Female
  Weight: 65.77 kg

DRUGS (1)
  1. REVLIMID [Suspect]
     Active Substance: LENALIDOMIDE
     Indication: Monoclonal gammopathy
     Dosage: 21D ON 7D OFF
     Route: 048

REACTIONS (6)
  - Hordeolum [Unknown]
  - Back pain [Unknown]
  - Neuropathy peripheral [Unknown]
  - Teeth brittle [Unknown]
  - Trismus [Unknown]
  - Off label use [Unknown]
